FAERS Safety Report 4976817-1 (Version None)
Quarter: 2006Q2

REPORT INFORMATION
  Report Type: 
  Country: None (occurrence: None)
  Receive Date: 20060413
  Receipt Date: 20060405
  Transmission Date: 20061013
  Serious: Yes (Other)
  Sender: FDA-Public Use
  Company Number: 2006048164

PATIENT
  Age: 36 Year
  Sex: Male
  Weight: 68.0396 kg

DRUGS (3)
  1. BENADRYL [Suspect]
     Indication: RASH
     Dosage: 4 KAPSEALS EVERY 4 TO 6 HOURS, ORAL
     Route: 048
     Dates: start: 20060317, end: 20060320
  2. GLIMEPIRIDE [Concomitant]
  3. OLMESARTAN MEDOXOMIL [Concomitant]

REACTIONS (1)
  - PARAESTHESIA [None]
